FAERS Safety Report 8692741 (Version 2)
Quarter: 2012Q4

REPORT INFORMATION
  Report Type: 
  Country: FR (occurrence: FR)
  Receive Date: 20120730
  Receipt Date: 20120920
  Transmission Date: 20130627
  Serious: Yes (Hospitalization)
  Sender: FDA-Public Use
  Company Number: FR-BAXTER-2012BAX012026

PATIENT
  Age: 17 Year
  Sex: Female

DRUGS (2)
  1. KIOVIG [Suspect]
     Indication: ACUTE ALLOGRAFT REJECTION
     Route: 042
     Dates: start: 20120620, end: 20120620
  2. KIOVIG [Suspect]
     Indication: INTENTIONAL USE FOR UNLABELED INDICATION
     Dates: start: 201204

REACTIONS (6)
  - Malaise [Recovered/Resolved]
  - Vomiting [Recovered/Resolved]
  - Tachycardia [Recovered/Resolved]
  - Tinnitus [Unknown]
  - Vertigo [Unknown]
  - Infusion related reaction [None]
